FAERS Safety Report 7959516-3 (Version None)
Quarter: 2011Q4

REPORT INFORMATION
  Report Type: 
  Country: None (occurrence: None)
  Receive Date: 20111206
  Receipt Date: 20111202
  Transmission Date: 20120403
  Serious: No
  Sender: FDA-Public Use
  Company Number: US-PFIZER INC-2011262943

PATIENT

DRUGS (2)
  1. PRISTIQ [Suspect]
     Dosage: UNK
  2. PSYLLIUM HUSK [Suspect]

REACTIONS (1)
  - MEDICATION RESIDUE [None]
